FAERS Safety Report 5594570-8 (Version None)
Quarter: 2008Q1

REPORT INFORMATION
  Report Type: 
  Country: None (occurrence: None)
  Receive Date: 20080117
  Receipt Date: 20080110
  Transmission Date: 20080703
  Serious: Yes (Hospitalization, Other)
  Sender: FDA-Public Use
  Company Number: AU-BRISTOL-MYERS SQUIBB COMPANY-14036826

PATIENT
  Sex: Female

DRUGS (1)
  1. SPRYCEL [Suspect]
     Indication: BLAST CRISIS IN MYELOGENOUS LEUKAEMIA

REACTIONS (4)
  - LARGE INTESTINAL ULCER [None]
  - LOWER GASTROINTESTINAL HAEMORRHAGE [None]
  - LUNG DISORDER [None]
  - SEPSIS [None]
